FAERS Safety Report 7207652-1 (Version None)
Quarter: 2011Q1

REPORT INFORMATION
  Report Type: 
  Country: None (occurrence: None)
  Receive Date: 20110103
  Receipt Date: 20101228
  Transmission Date: 20110831
  Serious: Yes (Other)
  Sender: FDA-Public Use
  Company Number: NL-ROXANE LABORATORIES, INC.-2010-RO-01728RO

PATIENT
  Age: 68 Year
  Sex: Male
  Weight: 86 kg

DRUGS (4)
  1. OMEPRAZOLE [Suspect]
     Dosage: 20 MG
  2. METHOTREXATE [Suspect]
     Indication: RHEUMATOID ARTHRITIS
     Route: 058
  3. FOLIC ACID [Suspect]
  4. HYDROXYCHLOROQUINE SULFATE [Suspect]
     Dosage: 200 MG

REACTIONS (2)
  - TIBIA FRACTURE [None]
  - OSTEOPENIA [None]
